FAERS Safety Report 19196759 (Version 16)
Quarter: 2023Q2

REPORT INFORMATION
  Report Type: Other
  Country: CA (occurrence: CA)
  Receive Date: 20210429
  Receipt Date: 20230612
  Transmission Date: 20230722
  Serious: Yes (Hospitalization)
  Sender: FDA-Public Use
  Company Number: CA-002147023-PHHY2018CA027169

PATIENT
  Age: 76 Year
  Sex: Female

DRUGS (18)
  1. XOLAIR [Suspect]
     Active Substance: OMALIZUMAB
     Indication: Chronic spontaneous urticaria
     Route: 058
     Dates: start: 20171012
  2. XOLAIR [Suspect]
     Active Substance: OMALIZUMAB
     Route: 058
  3. XOLAIR [Suspect]
     Active Substance: OMALIZUMAB
     Dosage: UNK, UNK, UNKNOWN
     Route: 058
     Dates: start: 20210430
  4. XOLAIR [Suspect]
     Active Substance: OMALIZUMAB
     Dosage: UNK, UNK, UNKNOWN
     Route: 058
     Dates: start: 20210430
  5. XOLAIR [Suspect]
     Active Substance: OMALIZUMAB
     Dosage: UNK, UNK, UNKNOWN
     Route: 058
     Dates: start: 20201215
  6. XOLAIR [Suspect]
     Active Substance: OMALIZUMAB
     Route: 058
  7. CETIRIZINE HYDROCHLORIDE [Concomitant]
     Active Substance: CETIRIZINE HYDROCHLORIDE
     Indication: Product used for unknown indication
     Route: 065
     Dates: start: 201404
  8. BENADRYL [Concomitant]
     Active Substance: DIPHENHYDRAMINE HYDROCHLORIDE
     Indication: Product used for unknown indication
     Route: 065
  9. ATARAX [Concomitant]
     Active Substance: HYDROXYZINE HYDROCHLORIDE
     Indication: Product used for unknown indication
     Route: 065
     Dates: start: 201509
  10. MYCOPHENOLIC ACID [Concomitant]
     Active Substance: MYCOPHENOLIC ACID
     Indication: Product used for unknown indication
     Dates: start: 20170213
  11. BRICANYL [Concomitant]
     Active Substance: TERBUTALINE SULFATE
     Indication: Product used for unknown indication
     Dosage: UNK
     Route: 065
  12. PREDNISONE [Concomitant]
     Active Substance: PREDNISONE
  13. BILASTINE [Concomitant]
     Active Substance: BILASTINE
     Route: 065
     Dates: start: 20170314
  14. HYDROXYCHLOROQUINE [Concomitant]
     Active Substance: HYDROXYCHLOROQUINE
     Indication: Product used for unknown indication
  15. AMLODIPINE [Concomitant]
     Active Substance: AMLODIPINE BESYLATE
     Indication: Product used for unknown indication
  16. IRBESARTAN [Concomitant]
     Active Substance: IRBESARTAN
     Indication: Product used for unknown indication
  17. ROSUVASTATIN [Concomitant]
     Active Substance: ROSUVASTATIN
     Indication: Product used for unknown indication
  18. LANSOPRAZOLE [Concomitant]
     Active Substance: LANSOPRAZOLE
     Indication: Product used for unknown indication

REACTIONS (13)
  - Hernia [Not Recovered/Not Resolved]
  - Pain [Unknown]
  - Chills [Unknown]
  - Cough [Unknown]
  - Heart rate increased [Unknown]
  - Hypertension [Unknown]
  - Abdominal discomfort [Unknown]
  - Pyrexia [Unknown]
  - Headache [Unknown]
  - Pruritus [Unknown]
  - Urticaria [Unknown]
  - Drug ineffective [Unknown]
  - Dizziness postural [Unknown]

NARRATIVE: CASE EVENT DATE: 20180201
